FAERS Safety Report 22115558 (Version 1)
Quarter: 2023Q1

REPORT INFORMATION
  Report Type: Spontaneous
  Country: US (occurrence: US)
  Receive Date: 20230320
  Receipt Date: 20230320
  Transmission Date: 20230418
  Serious: No
  Sender: FDA-Public Use
  Company Number: US-SA-SAC20230315001307

PATIENT
  Age: 44 Year
  Sex: Male
  Weight: 117 kg

DRUGS (1)
  1. DUPIXENT [Suspect]
     Active Substance: DUPILUMAB
     Indication: Asthma
     Dosage: 2ML (1 PEN) FREQUENCY- EVERY 2 WEEKS
     Route: 058
     Dates: start: 20230225

REACTIONS (4)
  - Headache [Not Recovered/Not Resolved]
  - Hypertension [Unknown]
  - Dermatitis acneiform [Unknown]
  - Erythema [Unknown]

NARRATIVE: CASE EVENT DATE: 20230225
